FAERS Safety Report 23356999 (Version 3)
Quarter: 2024Q1

REPORT INFORMATION
  Report Type: Report from Study
  Country: US (occurrence: US)
  Receive Date: 20240102
  Receipt Date: 20240123
  Transmission Date: 20240410
  Serious: No
  Sender: FDA-Public Use
  Company Number: US-JNJFOC-20231222928

PATIENT
  Sex: Female

DRUGS (9)
  1. STELARA [Suspect]
     Active Substance: USTEKINUMAB
     Indication: Crohn^s disease
     Route: 058
  2. STELARA [Suspect]
     Active Substance: USTEKINUMAB
  3. GABAPENTIN [Concomitant]
     Active Substance: GABAPENTIN
  4. ESTROGEN NOS [Concomitant]
     Active Substance: ESTROGENS
     Dosage: 0.625-1.
  5. LOPERAMIDE HYDROCHLORIDE [Concomitant]
     Active Substance: LOPERAMIDE HYDROCHLORIDE
     Dosage: 2.5-0.02MG
  6. NEXIUM [Concomitant]
     Active Substance: ESOMEPRAZOLE MAGNESIUM
  7. ERGOCALCIFEROL [Concomitant]
     Active Substance: ERGOCALCIFEROL
     Dosage: 1000UNIT
  8. ALENDRONATE [Concomitant]
     Active Substance: ALENDRONATE SODIUM
  9. MELOXICAM [Concomitant]
     Active Substance: MELOXICAM

REACTIONS (2)
  - Device defective [Unknown]
  - Product dose omission issue [Unknown]
